FAERS Safety Report 8963096 (Version 1)
Quarter: 2012Q4

REPORT INFORMATION
  Report Type: Report from Study
  Country: US (occurrence: US)
  Receive Date: 20121213
  Receipt Date: 20121213
  Transmission Date: 20130627
  Serious: Yes (Other)
  Sender: FDA-Public Use
  Company Number: US-ROCHE-1166965

PATIENT
  Sex: Male

DRUGS (2)
  1. CAPECITABINE [Suspect]
     Indication: NEOPLASM MALIGNANT
     Route: 065
  2. OXALIPLATIN [Concomitant]

REACTIONS (1)
  - Anaphylactic reaction [Unknown]
